FAERS Safety Report 9731257 (Version 2)
Quarter: 2013Q4

REPORT INFORMATION
  Report Type: Report from Study
  Country: DE (occurrence: DE)
  Receive Date: 20131205
  Receipt Date: 20131205
  Transmission Date: 20140711
  Serious: Yes (Death)
  Sender: FDA-Public Use
  Company Number: DE-BEH-2013038248

PATIENT
  Age: 84 Year
  Sex: Male
  Weight: 63 kg

DRUGS (4)
  1. PRIVIGEN [Suspect]
     Indication: CHRONIC LYMPHOCYTIC LEUKAEMIA
     Dosage: INFUSION RATE 1.66 ML/MIN
     Route: 042
     Dates: start: 20130221, end: 20130221
  2. PRIVIGEN [Suspect]
     Indication: INFECTION
     Dosage: INFUSION RATE 1.66 ML/MIN
     Route: 042
     Dates: start: 20130221, end: 20130221
  3. PRIVIGEN [Suspect]
     Indication: SECONDARY IMMUNODEFICIENCY
     Dosage: INFUSION RATE 1.66 ML/MIN
     Route: 042
     Dates: start: 20130221, end: 20130221
  4. RAMIPRIL [Concomitant]
     Dosage: 1/2 - 0 - 1/2

REACTIONS (1)
  - Chronic lymphocytic leukaemia [Fatal]
